FAERS Safety Report 21688369 (Version 1)
Quarter: 2022Q4

REPORT INFORMATION
  Report Type: Spontaneous
  Country: BE (occurrence: BE)
  Receive Date: 20221206
  Receipt Date: 20221206
  Transmission Date: 20230113
  Serious: Yes (Hospitalization)
  Sender: FDA-Public Use
  Company Number: None

PATIENT
  Age: 36 Year
  Sex: Female
  Weight: 65 kg

DRUGS (2)
  1. OZEMPIC [Suspect]
     Active Substance: SEMAGLUTIDE
     Dosage: DOSE REDUCED
     Route: 058
     Dates: end: 20221114
  2. OZEMPIC [Suspect]
     Active Substance: SEMAGLUTIDE
     Indication: Glucose tolerance impaired
     Dosage: 1 DF, QW
     Route: 058
     Dates: start: 20220204

REACTIONS (5)
  - Skin warm [Recovering/Resolving]
  - Pruritus [Recovering/Resolving]
  - Skin burning sensation [Recovering/Resolving]
  - Rash [Recovering/Resolving]
  - Product use in unapproved indication [Unknown]

NARRATIVE: CASE EVENT DATE: 20220204
